FAERS Safety Report 5064445-1 (Version None)
Quarter: 2006Q3

REPORT INFORMATION
  Report Type: 
  Country: None (occurrence: None)
  Receive Date: 20060728
  Receipt Date: 20060531
  Transmission Date: 20061208
  Serious: Yes (Hospitalization)
  Sender: FDA-Public Use
  Company Number: PL-AMGEN-UK181260

PATIENT
  Sex: Female

DRUGS (4)
  1. PALIFERMIN [Suspect]
     Indication: RADIATION DYSPHAGIA
     Route: 040
     Dates: start: 20060407
  2. PACLITAXEL [Concomitant]
     Route: 042
     Dates: start: 20060519
  3. CARBOPLATIN [Concomitant]
     Route: 042
     Dates: start: 20060519
  4. DICLOFENAC [Concomitant]
     Route: 054
     Dates: start: 20060529

REACTIONS (1)
  - NEUTROPENIA [None]
